FAERS Safety Report 8725837 (Version 2)
Quarter: 2012Q4

REPORT INFORMATION
  Report Type: 
  Country: US (occurrence: US)
  Receive Date: 20120816
  Receipt Date: 20121217
  Transmission Date: 20130627
  Serious: No
  Sender: FDA-Public Use
  Company Number: US-BIOGENIDEC-2012BI030420

PATIENT
  Sex: Male

DRUGS (3)
  1. TYSABRI [Suspect]
     Indication: MULTIPLE SCLEROSIS
     Route: 042
     Dates: start: 20100721, end: 20120614
  2. BENADRYL [Concomitant]
     Indication: PREMEDICATION
     Dates: start: 201206
  3. PREDNISONE [Concomitant]
     Indication: PREMEDICATION
     Dates: start: 201206

REACTIONS (7)
  - Pain in extremity [Recovered/Resolved]
  - Hypoaesthesia [Unknown]
  - Trigeminal neuralgia [Not Recovered/Not Resolved]
  - Oedema peripheral [Recovered/Resolved]
  - Neuralgia [Recovered/Resolved]
  - Nausea [Recovered/Resolved]
  - Chest discomfort [Recovered/Resolved]
